FAERS Safety Report 17771938 (Version 6)
Quarter: 2020Q4

REPORT INFORMATION
  Report Type: Report from Study
  Country: US (occurrence: US)
  Receive Date: 20200512
  Receipt Date: 20201118
  Transmission Date: 20210113
  Serious: Yes (Life-Threatening, Hospitalization, Disabling, Congenital Anomaly, Other)
  Sender: FDA-Public Use
  Company Number: US-SA-2020SA091271

PATIENT

DRUGS (21)
  1. SARILUMAB [Suspect]
     Active Substance: SARILUMAB
     Dosage: 400 MG, 1X
     Route: 042
     Dates: start: 20200417, end: 20200417
  2. SARILUMAB [Suspect]
     Active Substance: SARILUMAB
     Dosage: 400 MG, 1X
     Route: 042
     Dates: start: 20200411, end: 20200411
  3. VANCOMYCIN [Concomitant]
     Active Substance: VANCOMYCIN
     Dosage: 1500 MG, Q8H
     Route: 042
     Dates: start: 20200413, end: 20200414
  4. FLUCONAZOLE. [Concomitant]
     Active Substance: FLUCONAZOLE
     Indication: FUNGAEMIA
     Dosage: 400 MG, QD
     Route: 042
     Dates: start: 20200501, end: 20200501
  5. CEFTRIAXONE. [Concomitant]
     Active Substance: CEFTRIAXONE
     Indication: PNEUMONIA
     Dosage: 1000 MG, QD
     Route: 042
     Dates: start: 20200321, end: 20200324
  6. PHENOBARBITAL. [Concomitant]
     Active Substance: PHENOBARBITAL
     Indication: EPILEPSY
     Dosage: 650 MG, 1X
     Route: 042
     Dates: start: 20200417, end: 20200417
  7. OXYCODONE [Concomitant]
     Active Substance: OXYCODONE
     Indication: PAIN
     Dosage: 10 MG, Q6H
     Route: 048
     Dates: start: 20200507
  8. HYDROXYCHLOROQUINE [Concomitant]
     Active Substance: HYDROXYCHLOROQUINE
     Indication: COVID-19
     Dosage: 400MG DAY , 200 AFTER ARDS, EVERY 12H
     Route: 048
     Dates: start: 20200322, end: 20200326
  9. VANCOMYCIN [Concomitant]
     Active Substance: VANCOMYCIN
     Dosage: 1500 MG, BID
     Route: 042
     Dates: start: 20200411, end: 20200413
  10. LOVENOX [Concomitant]
     Active Substance: ENOXAPARIN SODIUM
     Indication: THROMBOSIS PROPHYLAXIS
     Dosage: 40 MG, QD
     Dates: start: 20200322, end: 20200329
  11. SARILUMAB [Suspect]
     Active Substance: SARILUMAB
     Indication: COVID-19
     Dosage: 400 MG, 1X
     Route: 042
     Dates: start: 20200322, end: 20200322
  12. FLUCONAZOLE. [Concomitant]
     Active Substance: FLUCONAZOLE
     Indication: FUNGAEMIA
     Dosage: 800 MG, QD
     Route: 048
     Dates: start: 20200430, end: 20200430
  13. AZITHROMYCIN ANHYDROUS. [Concomitant]
     Active Substance: AZITHROMYCIN ANHYDROUS
     Indication: COVID-19
     Dosage: 500 MG, QD
     Route: 048
     Dates: start: 20200321, end: 20200321
  14. ACETAMINOPHEN. [Concomitant]
     Active Substance: ACETAMINOPHEN
     Dosage: 650 MG, Q6H
     Route: 048
     Dates: start: 20200321
  15. ACETAMINOPHEN. [Concomitant]
     Active Substance: ACETAMINOPHEN
     Indication: PYREXIA
  16. VANCOMYCIN [Concomitant]
     Active Substance: VANCOMYCIN
     Indication: COVID-19 PNEUMONIA
     Dosage: 1000 MG, Q12H
     Dates: start: 20200324, end: 20200325
  17. PIPERACILLIN/TAZOBACTAM SANDOZ [Concomitant]
     Active Substance: PIPERACILLIN SODIUM\TAZOBACTAM SODIUM
     Indication: COVID-19 PNEUMONIA
     Dosage: 4.5 MG, QID
     Route: 042
     Dates: start: 20200324, end: 20200402
  18. MEROPENEM. [Concomitant]
     Active Substance: MEROPENEM
     Indication: COVID-19 PNEUMONIA
     Dosage: 1000 MG, Q8H
     Route: 042
     Dates: start: 20200402, end: 20200409
  19. MEROPENEM. [Concomitant]
     Active Substance: MEROPENEM
     Dosage: 1000 MG, Q8H
     Route: 042
     Dates: start: 20200411, end: 20200416
  20. MEROPENEM. [Concomitant]
     Active Substance: MEROPENEM
     Dosage: 1000 MG, Q8H
     Route: 042
     Dates: start: 20200421, end: 20200501
  21. VANCOMYCIN [Concomitant]
     Active Substance: VANCOMYCIN
     Dosage: 1500 MG, Q12H
     Route: 042
     Dates: start: 20200326, end: 20200330

REACTIONS (8)
  - Fungal sepsis [Recovered/Resolved]
  - Urinary tract infection [Recovered/Resolved]
  - Pneumonia bacterial [Recovered/Resolved]
  - Urinary tract infection [Recovered/Resolved]
  - Hypotension [Recovered/Resolved]
  - Deep vein thrombosis [Recovered/Resolved]
  - Histoplasmosis [Recovered/Resolved]
  - Acute kidney injury [Recovered/Resolved]

NARRATIVE: CASE EVENT DATE: 20200329
